FAERS Safety Report 6530957-4 (Version None)
Quarter: 2010Q1

REPORT INFORMATION
  Report Type: 
  Country: None (occurrence: None)
  Receive Date: 20100108
  Receipt Date: 20090716
  Transmission Date: 20100710
  Serious: No
  Sender: FDA-Public Use
  Company Number: A0797309A

PATIENT
  Age: 63 Year
  Sex: Male

DRUGS (5)
  1. LOVAZA [Suspect]
     Dosage: 2CAP TWICE PER DAY
     Route: 048
     Dates: start: 20090629
  2. PRAVASTATIN [Concomitant]
  3. METOPROLOL TARTRATE [Concomitant]
  4. ASPIRIN [Concomitant]
  5. CO Q10 [Concomitant]

REACTIONS (1)
  - MYALGIA [None]
